FAERS Safety Report 20183663 (Version 2)
Quarter: 2022Q1

REPORT INFORMATION
  Report Type: Spontaneous
  Country: DE (occurrence: DE)
  Receive Date: 20211214
  Receipt Date: 20220124
  Transmission Date: 20220423
  Serious: Yes (Other)
  Sender: FDA-Public Use
  Company Number: DE-BIOGEN-2021BI01076026

PATIENT
  Age: 35 Year
  Sex: Female

DRUGS (3)
  1. SPINRAZA [Suspect]
     Active Substance: NUSINERSEN
     Indication: Spinal muscular atrophy
     Dosage: LOADING DOSE ON DAYS 0,14 AND 28
     Route: 037
     Dates: start: 201809
  2. SPINRAZA [Suspect]
     Active Substance: NUSINERSEN
     Dosage: FOUR LOADING DOSES ON DAY 63
     Route: 037
     Dates: start: 2018
  3. SPINRAZA [Suspect]
     Active Substance: NUSINERSEN
     Dosage: MAINTENANCE DOSE
     Route: 037

REACTIONS (6)
  - Deafness transitory [Recovered/Resolved]
  - Motor dysfunction [Recovered/Resolved]
  - Hyperhidrosis [Unknown]
  - Spinal fusion acquired [Not Recovered/Not Resolved]
  - Muscle fatigue [Unknown]
  - Hypoaesthesia [Unknown]

NARRATIVE: CASE EVENT DATE: 20180101
